FAERS Safety Report 13003180 (Version 1)
Quarter: 2016Q4

REPORT INFORMATION
  Report Type: Spontaneous
  Country: IT (occurrence: IT)
  Receive Date: 20161206
  Receipt Date: 20161206
  Transmission Date: 20170207
  Serious: Yes (Other)
  Sender: FDA-Public Use
  Company Number: PHHY2016IT164271

PATIENT
  Age: 76 Year
  Sex: Male

DRUGS (4)
  1. GLIVEC [Suspect]
     Active Substance: IMATINIB MESYLATE
     Indication: CHRONIC MYELOID LEUKAEMIA
     Dosage: 400 MG, QD
     Route: 065
  2. CARBOPLATIN. [Suspect]
     Active Substance: CARBOPLATIN
     Indication: CHRONIC MYELOID LEUKAEMIA
     Dosage: 450 MG TOTAL DOSE EVERY 21 DAYS
     Route: 065
     Dates: start: 201309, end: 201312
  3. ERBITUX [Suspect]
     Active Substance: CETUXIMAB
     Indication: CHRONIC MYELOID LEUKAEMIA
     Dosage: 400 MG/MQ, UNK
     Route: 065
     Dates: start: 201309
  4. ERBITUX [Suspect]
     Active Substance: CETUXIMAB
     Dosage: 250 MG/MQ, QW
     Route: 065
     Dates: end: 201312

REACTIONS (4)
  - White blood cell count decreased [Unknown]
  - Laryngeal cancer stage III [Unknown]
  - Chronic myeloid leukaemia recurrent [Unknown]
  - Malignant neoplasm progression [Unknown]

NARRATIVE: CASE EVENT DATE: 201207
